FAERS Safety Report 8315635-3 (Version None)
Quarter: 2012Q2

REPORT INFORMATION
  Report Type: 
  Country: None (occurrence: None)
  Receive Date: 20120426
  Receipt Date: 20120422
  Transmission Date: 20120825
  Serious: Yes (Other)
  Sender: FDA-Public Use
  Company Number: AT-AMGEN-AUTSP2012021601

PATIENT
  Age: 65 Year
  Sex: Female
  Weight: 50 kg

DRUGS (8)
  1. LEVOTHYROXINE SODIUM [Concomitant]
     Indication: HYPOTHYROIDISM
     Dosage: 75 MG, UNK
     Route: 048
  2. PROLIA [Suspect]
     Indication: OSTEOPOROSIS POSTMENOPAUSAL
     Dosage: UNK
     Route: 058
     Dates: start: 20111104
  3. MOXONIBENE [Concomitant]
     Indication: HYPERTENSION
     Dosage: UNK
  4. HERZSCHUTZASS [Concomitant]
     Indication: PROPHYLAXIS
     Dosage: 100 MG, UNK
     Route: 048
  5. OLEOVIT D3 [Concomitant]
  6. SIMVASTATIN [Concomitant]
  7. LOSARTAN POTASSIUM [Concomitant]
     Indication: HYPERTENSION
     Dosage: 50 MG, UNK
     Route: 048
  8. NEPHROTRANS [Concomitant]
     Indication: RENAL FAILURE
     Dosage: UNK
     Route: 048

REACTIONS (5)
  - CHILLS [None]
  - PAIN IN EXTREMITY [None]
  - PLATELET COUNT DECREASED [None]
  - ARTHRALGIA [None]
  - HYPERHIDROSIS [None]
